FAERS Safety Report 18984546 (Version 2)
Quarter: 2021Q1

REPORT INFORMATION
  Report Type: Spontaneous
  Country: DE (occurrence: DE)
  Receive Date: 20210309
  Receipt Date: 20210324
  Transmission Date: 20210420
  Serious: Yes (Life-Threatening, Hospitalization)
  Sender: FDA-Public Use
  Company Number: DE-OCTA-GAM04121DE

PATIENT
  Age: 77 Year
  Sex: Male
  Weight: 90 kg

DRUGS (5)
  1. METAMIZOLE [Concomitant]
     Active Substance: METAMIZOLE
     Indication: PAIN
  2. VALSARTAN. [Concomitant]
     Active Substance: VALSARTAN
     Indication: HYPERTENSION
  3. OCTAGAM IMMUNE GLOBULIN (HUMAN) [Suspect]
     Active Substance: HUMAN IMMUNOGLOBULIN G
     Indication: GUILLAIN-BARRE SYNDROME
     Route: 042
     Dates: start: 20190103, end: 20190104
  4. FRAXIPARIN [Concomitant]
     Active Substance: NADROPARIN CALCIUM
     Indication: THROMBOSIS PROPHYLAXIS
     Dosage: GIVEN ROUTINELY
     Route: 058
  5. PREGABALIN. [Concomitant]
     Active Substance: PREGABALIN
     Indication: PAIN

REACTIONS (2)
  - Dermatitis allergic [Recovered/Resolved]
  - Myocardial infarction [Recovered/Resolved]

NARRATIVE: CASE EVENT DATE: 20190114
